FAERS Safety Report 9645315 (Version 3)
Quarter: 2013Q4

REPORT INFORMATION
  Report Type: Report from Study
  Country: RU (occurrence: RU)
  Receive Date: 20131025
  Receipt Date: 20131217
  Transmission Date: 20140711
  Serious: Yes (Hospitalization, Other)
  Sender: FDA-Public Use
  Company Number: RU-ROCHE-1262955

PATIENT
  Age: 37 Year
  Sex: Female
  Weight: 57 kg

DRUGS (8)
  1. AVASTIN [Suspect]
     Indication: COLON CANCER
     Route: 065
     Dates: start: 20121031
  2. AVASTIN [Suspect]
     Route: 065
  3. XELODA [Suspect]
     Indication: COLON CANCER
     Route: 048
     Dates: start: 20131024
  4. XELODA [Suspect]
     Dosage: DOSAGE:DURING 14 DAYS, THEN 7-DAY INTERVAL
     Route: 048
  5. LEUCOVORIN [Concomitant]
     Indication: COLON CANCER
     Route: 042
     Dates: start: 20121031, end: 20130513
  6. OXALIPLATIN [Concomitant]
     Indication: COLON CANCER
     Route: 042
     Dates: start: 20121031, end: 20130513
  7. OXALIPLATIN [Concomitant]
     Route: 042
     Dates: start: 20131024
  8. 5-FLUOROURACIL [Concomitant]
     Indication: COLON CANCER
     Dosage: DOSE- 400+ 600 MG/M2
     Route: 042
     Dates: start: 20121031, end: 20130513

REACTIONS (4)
  - Uterine polyp [Unknown]
  - Disease progression [Unknown]
  - Thrombocytopenia [Not Recovered/Not Resolved]
  - Diarrhoea [Not Recovered/Not Resolved]
